FAERS Safety Report 7973861-7 (Version None)
Quarter: 2011Q4

REPORT INFORMATION
  Report Type: 
  Country: None (occurrence: None)
  Receive Date: 20111213
  Receipt Date: 20111205
  Transmission Date: 20120403
  Serious: Yes (Other)
  Sender: FDA-Public Use
  Company Number: US-ROCHE-1019322

PATIENT
  Sex: Male

DRUGS (11)
  1. COPEGUS [Suspect]
     Indication: PRODUCT USED FOR UNKNOWN INDICATION
  2. NEUPOGEN [Concomitant]
  3. AMBIEN [Concomitant]
  4. PROCRIT [Concomitant]
  5. BOCEPREVIR [Suspect]
     Indication: PRODUCT USED FOR UNKNOWN INDICATION
     Route: 048
  6. TRAZODONE HCL [Concomitant]
  7. LEVOXYL [Concomitant]
  8. PEGINTERFERON ALFA-2A [Suspect]
     Indication: PRODUCT USED FOR UNKNOWN INDICATION
  9. VITAMIN D [Concomitant]
  10. PROZAC [Concomitant]
  11. PRAVASTATIN [Concomitant]

REACTIONS (6)
  - DEPRESSION [None]
  - RED BLOOD CELL COUNT DECREASED [None]
  - DYSPNOEA [None]
  - DYSPHONIA [None]
  - COUGH [None]
  - WHITE BLOOD CELL COUNT DECREASED [None]
